FAERS Safety Report 7671617-6 (Version None)
Quarter: 2011Q3

REPORT INFORMATION
  Report Type: 
  Country: None (occurrence: None)
  Receive Date: 20110809
  Receipt Date: 20110801
  Transmission Date: 20111222
  Serious: Yes (Hospitalization)
  Sender: FDA-Public Use
  Company Number: US-ACTELION-A-US2011-52320

PATIENT

DRUGS (2)
  1. SILDENAFIL CITRATE [Concomitant]
  2. EPOPROSTENOL SODIUM [Suspect]
     Indication: PULMONARY ARTERIAL HYPERTENSION
     Dosage: 9 NG/KG, PER MIN
     Route: 042
     Dates: start: 20110609

REACTIONS (3)
  - BLOOD POTASSIUM DECREASED [None]
  - HEADACHE [None]
  - MYALGIA [None]
